FAERS Safety Report 6001322-3 (Version None)
Quarter: 2008Q4

REPORT INFORMATION
  Report Type: 
  Country: None (occurrence: None)
  Receive Date: 20081215
  Receipt Date: 20081208
  Transmission Date: 20090506
  Serious: Yes (Hospitalization)
  Sender: FDA-Public Use
  Company Number: PHHY2008CA30610

PATIENT
  Sex: Male

DRUGS (8)
  1. DIOVAN [Suspect]
     Indication: HYPERTENSION
     Dosage: 160 MG
     Route: 048
     Dates: start: 20071023
  2. GLYBURIDE [Concomitant]
     Dosage: 2.5 MG OD
  3. METFORMIN HCL [Concomitant]
     Dosage: 500 MG, BID
  4. LIPIDIL [Concomitant]
     Dosage: 200 MG, UNK
  5. COMBIVENT [Concomitant]
     Dosage: UNK
  6. LIPITOR [Concomitant]
     Dosage: 40 MG, UNK
  7. ADVAIR DISKUS 250/50 [Concomitant]
     Dosage: 500 MG, BID
  8. RABEPRAZOLE SODIUM [Concomitant]
     Dosage: 20 MG OD

REACTIONS (6)
  - ABDOMINAL SEPSIS [None]
  - INCISIONAL HERNIA REPAIR [None]
  - INTESTINAL ISCHAEMIA [None]
  - LAPAROTOMY [None]
  - POST PROCEDURAL COMPLICATION [None]
  - SMALL INTESTINAL RESECTION [None]
